FAERS Safety Report 6130714-7 (Version None)
Quarter: 2009Q1

REPORT INFORMATION
  Report Type: 
  Country: None (occurrence: None)
  Receive Date: 20090325
  Receipt Date: 20090320
  Transmission Date: 20090719
  Serious: Yes (Other)
  Sender: FDA-Public Use
  Company Number: US-ASTRAZENECA-2007UW14292

PATIENT
  Age: 44 Year
  Sex: Male
  Weight: 104.3 kg

DRUGS (33)
  1. SEROQUEL [Suspect]
     Indication: SCHIZOPHRENIA
     Dosage: 100 MG ONCE DAILY, INCREASED TO 200 MG ONCE DAILY, THEN INCREASED TO 400 MG ONCE DAILY
     Route: 048
     Dates: start: 20051101, end: 20080219
  2. SEROQUEL [Suspect]
     Indication: DEPRESSION
     Dosage: 100 MG ONCE DAILY, INCREASED TO 200 MG ONCE DAILY, THEN INCREASED TO 400 MG ONCE DAILY
     Route: 048
     Dates: start: 20051101, end: 20080219
  3. SEROQUEL [Suspect]
     Indication: BIPOLAR DISORDER
     Dosage: 100 MG ONCE DAILY, INCREASED TO 200 MG ONCE DAILY, THEN INCREASED TO 400 MG ONCE DAILY
     Route: 048
     Dates: start: 20051101, end: 20080219
  4. RISPERDAL [Concomitant]
     Dates: start: 20011023, end: 20051017
  5. ZYPREXA [Concomitant]
     Dosage: 5 MG ONCE DAILY INCREASED TO 10 MG ONCE DAILY
     Dates: start: 20011030
  6. LUNESTA [Concomitant]
  7. TORADOL [Concomitant]
  8. LORCET-HD [Concomitant]
  9. LEVAQUIN [Concomitant]
  10. PERCOCET [Concomitant]
  11. ALBUTEROL [Concomitant]
  12. ADVAIR HFA [Concomitant]
     Dosage: 250/50 MCG
  13. METFORMIN [Concomitant]
  14. AVANDAMET [Concomitant]
     Dosage: 4 MG/100 MG
  15. PENICILLIN [Concomitant]
  16. CLONIDINE [Concomitant]
  17. DEPAKOTE [Concomitant]
     Dates: start: 20070514
  18. FLOXIN [Concomitant]
     Dosage: 0.3%
  19. QUINAPRIL [Concomitant]
  20. LABETALOL HCL [Concomitant]
  21. HYDROCODONE BITARTRATE + ACETAMINOPHEN [Concomitant]
     Dosage: 5 MG/325 MG
  22. CYCLOBENZAPRINE [Concomitant]
  23. TRAMADOL HCL [Concomitant]
  24. PIROXICAM [Concomitant]
  25. GABAPENTIN [Concomitant]
  26. LOTREL [Concomitant]
     Dosage: 10/40 MG
  27. AMOXICILLIN + CLAVULANATE POTASSIUM [Concomitant]
  28. HYDROCODONE BITARTRATE + ACETAMINOPHEN [Concomitant]
     Dosage: 7.5/200 MG
  29. HYDROCHLOROTHIAZIDE [Concomitant]
  30. DIAZEPAM [Concomitant]
  31. PANLOR-DC [Concomitant]
  32. NAPROXEN [Concomitant]
  33. OXYCODONE HCL [Concomitant]

REACTIONS (3)
  - CHRONIC OBSTRUCTIVE PULMONARY DISEASE [None]
  - HYPERGLYCAEMIA [None]
  - TYPE 2 DIABETES MELLITUS [None]
